FAERS Safety Report 10161329 (Version 1)
Quarter: 2014Q2

REPORT INFORMATION
  Report Type: Spontaneous
  Country: US (occurrence: US)
  Receive Date: 20140509
  Receipt Date: 20140509
  Transmission Date: 20141212
  Serious: Yes (Other)
  Sender: FDA-Public Use
  Company Number: US-AMGEN-USASP2014032512

PATIENT
  Age: 79 Year
  Sex: Female
  Weight: 65.76 kg

DRUGS (15)
  1. ENBREL [Suspect]
     Indication: PSORIATIC ARTHROPATHY
     Dosage: 50 MG, Q2WK
     Route: 058
     Dates: start: 20050719, end: 20140212
  2. ENBREL [Suspect]
     Indication: PSORIASIS
  3. ARAVA [Concomitant]
     Dosage: UNK
     Dates: start: 20110919, end: 20111010
  4. REMICADE [Concomitant]
     Dosage: UNK
     Dates: start: 20090306, end: 20090625
  5. ASPIRIN [Concomitant]
     Dosage: 81 MG, QD (1 TABLET)
     Route: 048
  6. CATAPRESS [Concomitant]
     Dosage: 0.1 MG, BID (1 TABLET)
     Route: 048
  7. LORTAB                             /00607101/ [Concomitant]
     Dosage: 10-500 MG 1 TABLET DAILY AS NEEDED
     Route: 048
  8. LUCENTIS [Concomitant]
     Dosage: INTRAVITREAL
  9. SYNTHROID [Concomitant]
     Dosage: 75 MU, QD (1 TABLET)
     Route: 048
  10. TENORMIN [Concomitant]
     Dosage: 25 MG, QD (2 TABLETS BY ORAL ROUTE DAILY FOR 1 DAY)
     Route: 048
     Dates: start: 20130711
  11. TRIAMTEREEN/HYDROCHLOORTHIAZIDE [Concomitant]
     Dosage: 37.5/25MG 1 CAPSULE DAILY
     Route: 048
  12. VITAMIN B-12 [Concomitant]
     Dosage: 1000 MU, (ONCE A MONTH)
     Route: 030
  13. VITAMIN B-12 [Concomitant]
     Dosage: 1000 MCG I TABLET UNDER TOUNGE BY TRANSLINGUAL ROUTE DAILY
     Route: 060
  14. VITAMIN D3 [Concomitant]
     Dosage: 1000 UNIT, QD
     Route: 048
  15. XELJANZ [Concomitant]
     Dosage: 5 MG, BID
     Route: 048

REACTIONS (21)
  - Psoriatic arthropathy [Unknown]
  - Pelvic floor repair [Unknown]
  - Psoriasis [Unknown]
  - Urinary tract infection [Unknown]
  - Pain in extremity [Unknown]
  - Musculoskeletal stiffness [Unknown]
  - Mobility decreased [Unknown]
  - Arthropathy [Unknown]
  - Back pain [Unknown]
  - Blood uric acid abnormal [Unknown]
  - Fatigue [Unknown]
  - Dyspnoea [Unknown]
  - Rash [Unknown]
  - Pruritus [Unknown]
  - Insomnia [Unknown]
  - Blood pressure abnormal [Unknown]
  - Joint swelling [Unknown]
  - Foot deformity [Unknown]
  - Tenderness [Unknown]
  - Pulmonary arterial pressure abnormal [Unknown]
  - Drug ineffective [Unknown]
